FAERS Safety Report 5059762-5 (Version None)
Quarter: 2006Q3

REPORT INFORMATION
  Report Type: 
  Country: None (occurrence: None)
  Receive Date: 20060724
  Receipt Date: 20060719
  Transmission Date: 20061208
  Serious: Yes (Death)
  Sender: FDA-Public Use
  Company Number: PHBS2006IE10892

PATIENT

DRUGS (1)
  1. GLEEVEC [Suspect]
     Dosage: 400 MG/D
     Route: 048

REACTIONS (1)
  - DEATH [None]
